FAERS Safety Report 25999980 (Version 1)
Quarter: 2025Q4

REPORT INFORMATION
  Report Type: Spontaneous
  Country: US (occurrence: US)
  Receive Date: 20251105
  Receipt Date: 20251105
  Transmission Date: 20260118
  Serious: Yes (Other)
  Sender: RANBAXY
  Company Number: US-SUN PHARMACEUTICAL INDUSTRIES LTD-2025R1-533436

PATIENT
  Sex: Female

DRUGS (1)
  1. LENALIDOMIDE [Suspect]
     Active Substance: LENALIDOMIDE
     Indication: Plasma cell myeloma
     Dosage: 10 MILLIGRAM
     Route: 065

REACTIONS (9)
  - Condition aggravated [Unknown]
  - Insomnia [Unknown]
  - Brain fog [Unknown]
  - Palpitations [Unknown]
  - Dysuria [Unknown]
  - Abdominal distension [Unknown]
  - Constipation [Unknown]
  - Dyspnoea [Unknown]
  - Pruritus [Unknown]
